FAERS Safety Report 5658702-5 (Version None)
Quarter: 2008Q1

REPORT INFORMATION
  Report Type: 
  Country: None (occurrence: None)
  Receive Date: 20080310
  Receipt Date: 20070618
  Transmission Date: 20080703
  Serious: No
  Sender: FDA-Public Use
  Company Number: US-BAYER-200710977BCC

PATIENT
  Age: 63 Year
  Sex: Female
  Weight: 89 kg

DRUGS (5)
  1. ALEVE [Suspect]
     Indication: ARTHRITIS
     Dosage: TOTAL DAILY DOSE: 220 MG  UNIT DOSE: 220 MG
     Route: 048
     Dates: start: 20070323
  2. ALEVE [Suspect]
     Route: 048
     Dates: start: 20070327
  3. ZOCOR [Concomitant]
  4. ATENOLOL [Concomitant]
  5. HYDROCHLORET [Concomitant]

REACTIONS (3)
  - BLOOD PRESSURE INCREASED [None]
  - DIZZINESS [None]
  - INFLUENZA [None]
